FAERS Safety Report 7552238-2 (Version None)
Quarter: 2011Q2

REPORT INFORMATION
  Report Type: 
  Country: None (occurrence: None)
  Receive Date: 20110616
  Receipt Date: 20040319
  Transmission Date: 20111010
  Serious: Yes (Hospitalization)
  Sender: FDA-Public Use
  Company Number: PHHO2004JP04247

PATIENT
  Sex: Female
  Weight: 64 kg

DRUGS (2)
  1. DIOVAN [Suspect]
     Indication: HYPERTENSION
     Dosage: 80 MG, QD
     Dates: start: 20030125
  2. DIOVAN [Suspect]
     Dosage: UNK
     Dates: start: 20030430

REACTIONS (1)
  - DEMENTIA [None]
